FAERS Safety Report 7582020-1 (Version None)
Quarter: 2011Q2

REPORT INFORMATION
  Report Type: 
  Country: None (occurrence: None)
  Receive Date: 20110630
  Receipt Date: 20110622
  Transmission Date: 20111010
  Serious: No
  Sender: FDA-Public Use
  Company Number: US-BIOGENIDEC-2011BI002604

PATIENT
  Age: 53 Year
  Sex: Male

DRUGS (2)
  1. PAIN MEDICATION (NOS) [Concomitant]
     Indication: PAIN
  2. TYSABRI [Suspect]
     Indication: MULTIPLE SCLEROSIS
     Route: 042
     Dates: start: 20101230

REACTIONS (17)
  - DRUG INEFFECTIVE [None]
  - BLOOD URINE PRESENT [None]
  - FOOD CRAVING [None]
  - OEDEMA PERIPHERAL [None]
  - FATIGUE [None]
  - DIARRHOEA [None]
  - FEELING COLD [None]
  - LOSS OF CONTROL OF LEGS [None]
  - FAECES DISCOLOURED [None]
  - THROAT IRRITATION [None]
  - MUSCLE TIGHTNESS [None]
  - PAIN [None]
  - RHINORRHOEA [None]
  - APHONIA [None]
  - SKIN DISCOLOURATION [None]
  - HYPERSOMNIA [None]
  - HEADACHE [None]
